FAERS Safety Report 7391173-X (Version None)
Quarter: 2011Q2

REPORT INFORMATION
  Report Type: 
  Country: None (occurrence: None)
  Receive Date: 20110404
  Receipt Date: 20100323
  Transmission Date: 20111010
  Serious: No
  Sender: FDA-Public Use
  Company Number: US-PFIZER INC-2010037915

PATIENT
  Sex: Female
  Weight: 6.8 kg

DRUGS (2)
  1. GENOTROPIN [Suspect]
     Indication: TURNER'S SYNDROME
     Dosage: 0.4 MG, UNK
     Dates: start: 20100319
  2. OMNICEF [Concomitant]
     Dosage: UNK

REACTIONS (3)
  - FRUSTRATION [None]
  - SCREAMING [None]
  - ABNORMAL BEHAVIOUR [None]
